FAERS Safety Report 13601746 (Version 5)
Quarter: 2019Q1

REPORT INFORMATION
  Report Type: Spontaneous
  Country: JP (occurrence: JP)
  Receive Date: 20170601
  Receipt Date: 20190226
  Transmission Date: 20190417
  Serious: Yes (Hospitalization, Other)
  Sender: FDA-Public Use
  Company Number: JP-ACTELION-A-CH2017-154371

PATIENT
  Age: 26 Year
  Sex: Female
  Weight: 45.7 kg

DRUGS (24)
  1. FEXOFENADINE HYDROCHLORIDE. [Concomitant]
     Active Substance: FEXOFENADINE HYDROCHLORIDE
  2. TREPROSTINIL SODIUM [Suspect]
     Active Substance: TREPROSTINIL SODIUM
     Indication: PULMONARY ARTERIAL HYPERTENSION
     Dosage: UNK
     Route: 042
     Dates: start: 201506
  3. TREPROSTINIL SODIUM [Suspect]
     Active Substance: TREPROSTINIL SODIUM
     Dosage: 0.087 NG/KG, PER MIN
     Route: 042
     Dates: start: 20171108
  4. NEORAL [Suspect]
     Active Substance: CYCLOSPORINE
     Dosage: 200 MG, QD
     Route: 048
     Dates: start: 20180605
  5. TREPROSTINIL SODIUM [Suspect]
     Active Substance: TREPROSTINIL SODIUM
     Dosage: 0.089 NG/KG, PER MIN
     Route: 042
     Dates: start: 20180427
  6. THIURAGYL [Concomitant]
     Active Substance: PROPYLTHIOURACIL
  7. TREPROSTINIL SODIUM [Suspect]
     Active Substance: TREPROSTINIL SODIUM
     Dosage: UNK
     Route: 042
     Dates: start: 20171102
  8. EPOPROSTENOL ACT [Suspect]
     Active Substance: EPOPROSTENOL
     Indication: PULMONARY ARTERIAL HYPERTENSION
     Dosage: UNK
     Route: 042
     Dates: start: 201506
  9. EPOPROSTENOL ACT [Suspect]
     Active Substance: EPOPROSTENOL
     Dosage: 24 NG/KG, PER MIN
     Route: 042
     Dates: start: 20150811, end: 20171108
  10. ADCIRCA [Concomitant]
     Active Substance: TADALAFIL
  11. TREPROSTINIL SODIUM [Suspect]
     Active Substance: TREPROSTINIL SODIUM
     Dosage: 0.087 NG/KG, PER MIN
     Route: 042
     Dates: start: 20180209
  12. GENTAMICIN SULFATE. [Concomitant]
     Active Substance: GENTAMICIN SULFATE
     Dosage: UNK
     Dates: start: 20150619, end: 20150625
  13. EPOPROSTENOL ACT [Suspect]
     Active Substance: EPOPROSTENOL
     Dosage: 66.8 NG/KG, CONT INFUS
     Route: 042
     Dates: start: 201612
  14. OPSUMIT [Suspect]
     Active Substance: MACITENTAN
     Dosage: UNK
     Route: 048
  15. TREPROSTINIL SODIUM [Suspect]
     Active Substance: TREPROSTINIL SODIUM
     Dosage: 0.018 ?G/KG, PER MIN
     Route: 042
  16. TREPROSTINIL SODIUM [Suspect]
     Active Substance: TREPROSTINIL SODIUM
     Dosage: 0.078 NG/KG, PER MIN
     Route: 042
     Dates: start: 20180507, end: 2018
  17. MERCAZOLE [Suspect]
     Active Substance: CARBIMAZOLE
     Indication: PRODUCT USED FOR UNKNOWN INDICATION
     Dosage: UNK
     Route: 048
     Dates: start: 20150713, end: 20180521
  18. CEFZON [Concomitant]
     Active Substance: CEFDINIR
     Dosage: UNK
     Dates: start: 20150619, end: 20150703
  19. OPSUMIT [Suspect]
     Active Substance: MACITENTAN
     Indication: PRODUCT USED FOR UNKNOWN INDICATION
     Dosage: UNK
     Route: 048
     Dates: end: 20180628
  20. REVOLADE [Suspect]
     Active Substance: ELTROMBOPAG
     Indication: APLASTIC ANAEMIA
     Dosage: 50 MG, QD
     Route: 048
  21. FUROSEMIDE. [Suspect]
     Active Substance: FUROSEMIDE
     Indication: PRODUCT USED FOR UNKNOWN INDICATION
     Dosage: UNK
     Route: 065
     Dates: end: 20180515
  22. TRACLEER [Concomitant]
     Active Substance: BOSENTAN
     Indication: PULMONARY ARTERIAL HYPERTENSION
     Dosage: 62.5 UNK, UNK
     Route: 048
     Dates: start: 201406
  23. BISOPROLOL [Concomitant]
     Active Substance: BISOPROLOL
  24. NEORAL [Suspect]
     Active Substance: CYCLOSPORINE
     Indication: APLASTIC ANAEMIA
     Dosage: 320 MG, QD
     Route: 048

REACTIONS (13)
  - Urticaria chronic [Not Recovered/Not Resolved]
  - Pain in extremity [Unknown]
  - Hyperbilirubinaemia [Unknown]
  - Jaundice [Recovered/Resolved]
  - Hyperthyroidism [Unknown]
  - Nausea [Unknown]
  - Platelet transfusion [Unknown]
  - Hepatic function abnormal [Recovered/Resolved]
  - Blood bilirubin increased [Recovered/Resolved]
  - Platelet count decreased [Not Recovered/Not Resolved]
  - Device related infection [Unknown]
  - Brain natriuretic peptide increased [Recovered/Resolved]
  - Decreased appetite [Unknown]

NARRATIVE: CASE EVENT DATE: 2015
